FAERS Safety Report 24274191 (Version 1)
Quarter: 2024Q3

REPORT INFORMATION
  Report Type: Spontaneous
  Country: US (occurrence: US)
  Receive Date: 20240902
  Receipt Date: 20240902
  Transmission Date: 20241016
  Serious: No
  Sender: TEVA
  Company Number: US-TEVA-VS-3235563

PATIENT
  Sex: Male

DRUGS (1)
  1. MUPIROCIN [Suspect]
     Active Substance: MUPIROCIN
     Indication: Infection
     Dosage: STRENGTH ;2%
     Route: 045

REACTIONS (4)
  - Burning sensation [Unknown]
  - Product dispensing error [Unknown]
  - Pain [Unknown]
  - Circumstance or information capable of leading to medication error [Unknown]
